FAERS Safety Report 24194401 (Version 1)
Quarter: 2024Q3

REPORT INFORMATION
  Report Type: Spontaneous
  Country: US (occurrence: None)
  Receive Date: 20240808
  Receipt Date: 20240808
  Transmission Date: 20241017
  Serious: No
  Sender: Public
  Company Number: None

PATIENT
  Age: 31 Year
  Sex: Male

DRUGS (1)
  1. ZORYVE [Suspect]
     Active Substance: ROFLUMILAST
     Indication: Seborrhoeic dermatitis
     Dosage: FREQUENCY : DAILY;?
     Route: 061
     Dates: start: 20240620, end: 20240720

REACTIONS (2)
  - Glossitis [None]
  - Dysgeusia [None]

NARRATIVE: CASE EVENT DATE: 20240801
